FAERS Safety Report 17960482 (Version 1)
Quarter: 2020Q2

REPORT INFORMATION
  Report Type: Spontaneous
  Country: GB (occurrence: GB)
  Receive Date: 20200630
  Receipt Date: 20200630
  Transmission Date: 20200714
  Serious: Yes (Hospitalization)
  Sender: FDA-Public Use
  Company Number: GB-DRREDDYS-GER/UKI/20/0124603

PATIENT
  Age: 21 Year
  Sex: Male

DRUGS (1)
  1. FLUOXETINE 60MG HARD CAPSULES [Suspect]
     Active Substance: FLUOXETINE HYDROCHLORIDE
     Indication: PRODUCT USED FOR UNKNOWN INDICATION
     Route: 048

REACTIONS (3)
  - Product substitution issue [Unknown]
  - Dyspnoea [Unknown]
  - Product physical issue [Unknown]
